FAERS Safety Report 20136863 (Version 1)
Quarter: 2021Q4

REPORT INFORMATION
  Report Type: Spontaneous
  Country: None (occurrence: US)
  Receive Date: 20211201
  Receipt Date: 20211201
  Transmission Date: 20220304
  Serious: No
  Sender: FDA-Public Use
  Company Number: US-Breckenridge Pharmaceutical, Inc.-2122560

PATIENT
  Age: 73 Year
  Sex: Male

DRUGS (7)
  1. DULOXETINE [Suspect]
     Active Substance: DULOXETINE
     Indication: Depression
     Route: 048
  2. BISOPROLOL. [Concomitant]
     Active Substance: BISOPROLOL FUMARATE
  3. KETOCONAZOLE [Concomitant]
     Active Substance: KETOCONAZOLE
  4. CLOBETASOL PROPIONATE [Concomitant]
     Active Substance: CLOBETASOL PROPIONATE
  5. OTC vitamins [Concomitant]
  6. Fibre supplements [Concomitant]
  7. OMEPRAZOLE [Concomitant]
     Active Substance: OMEPRAZOLE

REACTIONS (3)
  - Vision blurred [Unknown]
  - Rash [Unknown]
  - Blood pressure increased [Unknown]
